FAERS Safety Report 9003327 (Version 1)
Quarter: 2013Q1

REPORT INFORMATION
  Report Type: Spontaneous
  Country: US (occurrence: US)
  Receive Date: 20130108
  Receipt Date: 20130108
  Transmission Date: 20140127
  Serious: No
  Sender: FDA-Public Use
  Company Number: US-ASTRAZENECA-2013SE00070

PATIENT
  Age: 56 Year
  Sex: Female
  Weight: 57.6 kg

DRUGS (4)
  1. QUETIAPINE [Suspect]
     Indication: MANIA
     Dosage: GENERIC
     Route: 048
     Dates: start: 201208, end: 20121211
  2. QUETIAPINE [Suspect]
     Indication: MANIA
     Dosage: GENERIC
     Route: 048
     Dates: start: 20121211, end: 20121215
  3. XANAX [Concomitant]
  4. SYNTHROID [Concomitant]

REACTIONS (8)
  - Agitation [Recovering/Resolving]
  - Anxiety [Recovering/Resolving]
  - Micturition urgency [Recovering/Resolving]
  - Decreased appetite [Recovering/Resolving]
  - Abdominal discomfort [Recovering/Resolving]
  - Nausea [Unknown]
  - Depressed mood [Recovering/Resolving]
  - Somnolence [Recovering/Resolving]
